FAERS Safety Report 4929394-5 (Version None)
Quarter: 2006Q1

REPORT INFORMATION
  Report Type: 
  Country: None (occurrence: None)
  Receive Date: 20060224
  Receipt Date: 20060223
  Transmission Date: 20060701
  Serious: Yes (Death)
  Sender: FDA-Public Use
  Company Number: 222284

PATIENT
  Age: 61 Year
  Sex: Female

DRUGS (5)
  1. HERCEPTIN [Suspect]
     Indication: BREAST CANCER METASTATIC
     Dosage: 4 MG/KG, SINGLE, INTRAVENOUS; 132 MG, 1/WEEK, INTRAVENOUS
     Route: 042
     Dates: end: 20060130
  2. HERCEPTIN [Suspect]
     Indication: BREAST CANCER METASTATIC
     Dosage: 4 MG/KG, SINGLE, INTRAVENOUS; 132 MG, 1/WEEK, INTRAVENOUS
     Route: 042
     Dates: start: 20060116
  3. CYCLOPHOSPHAMIDE [Suspect]
     Indication: BREAST CANCER METASTATIC
     Dosage: 1000 MG, DAY 1+8/Q4W, INTRAVENOUS
     Route: 042
     Dates: start: 20060116, end: 20060123
  4. METHOTREXATE [Suspect]
     Indication: BREAST CANCER METASTATIC
     Dosage: 70 MG, DAY 1 +8Q4W, INTRAVENOUS
     Route: 042
     Dates: start: 20060116, end: 20060123
  5. FLUOROURACIL [Suspect]
     Indication: BREAST CANCER METASTATIC
     Dosage: 1000 MG, DAY 1+8/Q4W, INTRAVENOUS
     Route: 042
     Dates: start: 20060116, end: 20060123

REACTIONS (4)
  - BRONCHOPNEUMONIA [None]
  - FEBRILE NEUTROPENIA [None]
  - METASTASES TO LIVER [None]
  - PLEURAL EFFUSION [None]
